FAERS Safety Report 10076620 (Version 1)
Quarter: 2014Q2

REPORT INFORMATION
  Report Type: Spontaneous
  Country: US (occurrence: US)
  Receive Date: 20140414
  Receipt Date: 20140414
  Transmission Date: 20141212
  Serious: No
  Sender: FDA-Public Use
  Company Number: US-GILEAD-2014-0099465

PATIENT
  Sex: Male

DRUGS (4)
  1. LETAIRIS [Suspect]
     Indication: PRODUCT USED FOR UNKNOWN INDICATION
     Dosage: 10 MG, QD
     Route: 065
     Dates: start: 20130522
  2. VENTAVIS [Concomitant]
     Route: 065
  3. ADCIRCA [Concomitant]
     Route: 065
  4. COUMADIN                           /00014802/ [Concomitant]
     Route: 065

REACTIONS (1)
  - Somnolence [Unknown]
